FAERS Safety Report 8732509 (Version 3)
Quarter: 2012Q4

REPORT INFORMATION
  Report Type: 
  Country: JP (occurrence: JP)
  Receive Date: 20120820
  Receipt Date: 20121029
  Transmission Date: 20130627
  Serious: Yes (Death)
  Sender: FDA-Public Use
  Company Number: JP-JNJFOC-20120809273

PATIENT
  Age: 86 Year
  Sex: Male
  Weight: 49 kg

DRUGS (16)
  1. XARELTO [Suspect]
     Indication: PRODUCT USED FOR UNKNOWN INDICATION
     Route: 048
     Dates: start: 20120710, end: 20120722
  2. TAKEPRON [Concomitant]
     Indication: PROPHYLAXIS
     Route: 048
     Dates: start: 20120201, end: 20120716
  3. EBASTEL [Concomitant]
     Indication: PRURITUS
     Route: 048
     Dates: start: 20120320, end: 20120716
  4. HERBESSER R [Concomitant]
     Indication: TACHYCARDIA
     Route: 048
     Dates: start: 20120221, end: 20120722
  5. HERBESSER R [Concomitant]
     Indication: ATRIAL FIBRILLATION
     Route: 048
     Dates: start: 20120221, end: 20120722
  6. DIGOXIN [Concomitant]
     Indication: TACHYCARDIA
     Route: 048
     Dates: start: 20101122, end: 20120716
  7. DIGOXIN [Concomitant]
     Indication: ATRIAL FIBRILLATION
     Route: 048
     Dates: start: 20101122, end: 20120716
  8. ASPENON [Concomitant]
     Indication: ATRIAL FIBRILLATION
     Route: 048
     Dates: start: 20120221, end: 20120722
  9. ARTIST [Concomitant]
     Indication: TACHYCARDIA
     Route: 048
     Dates: start: 20120710, end: 20120722
  10. ARTIST [Concomitant]
     Indication: ATRIAL FIBRILLATION
     Route: 048
     Dates: start: 20120710, end: 20120722
  11. DIART [Concomitant]
     Indication: TACHYCARDIA
     Route: 048
     Dates: start: 20120201, end: 20120722
  12. DIART [Concomitant]
     Indication: ATRIAL FIBRILLATION
     Route: 048
     Dates: start: 20120201, end: 20120722
  13. ISCOTIN [Concomitant]
     Indication: TUBERCULOSIS
     Route: 048
     Dates: start: 20120206, end: 20120730
  14. RIFADIN [Concomitant]
     Indication: TUBERCULOSIS
     Route: 048
     Dates: start: 20120206, end: 20120730
  15. EBUTOL [Concomitant]
     Indication: TUBERCULOSIS
     Route: 048
     Dates: start: 20120206, end: 20120730
  16. NEUROVITAN [Concomitant]
     Route: 048
     Dates: start: 20120206, end: 20120716

REACTIONS (1)
  - Myocardial infarction [Fatal]
